FAERS Safety Report 12442813 (Version 1)
Quarter: 2016Q2

REPORT INFORMATION
  Report Type: Spontaneous
  Country: US (occurrence: None)
  Receive Date: 20160606
  Receipt Date: 20160606
  Transmission Date: 20160815
  Serious: Yes (Disabling)
  Sender: FDA-Public Use
  Company Number: None

PATIENT
  Age: 47 Year
  Sex: Female
  Weight: 86.18 kg

DRUGS (1)
  1. LORAZEPAM, .5 MG RANBAXY [Suspect]
     Active Substance: LORAZEPAM
     Indication: ANXIETY
     Dosage: 90 TABLET(S) THREE TIMES A DAY TAKEN BY MOUTH
     Route: 048
     Dates: start: 20110901, end: 20140424

REACTIONS (8)
  - Migraine [None]
  - Gait disturbance [None]
  - Loss of consciousness [None]
  - Drug withdrawal syndrome [None]
  - Pain [None]
  - Dyspnoea [None]
  - Malaise [None]
  - Fatigue [None]

NARRATIVE: CASE EVENT DATE: 20130301
